FAERS Safety Report 13905599 (Version 2)
Quarter: 2017Q3

REPORT INFORMATION
  Report Type: Spontaneous
  Country: US (occurrence: US)
  Receive Date: 20170825
  Receipt Date: 20170908
  Transmission Date: 20171127
  Serious: Yes (Death, Other)
  Sender: FDA-Public Use
  Company Number: US-ASTELLAS-2017US033716

PATIENT
  Age: 80 Year
  Sex: Male

DRUGS (1)
  1. MYCAMINE [Suspect]
     Active Substance: MICAFUNGIN SODIUM
     Indication: CANDIDA INFECTION
     Route: 042
     Dates: start: 20160930, end: 20161004

REACTIONS (7)
  - Pneumonia aspiration [Fatal]
  - Brain injury [Unknown]
  - Encephalopathy [Not Recovered/Not Resolved]
  - Drug ineffective [Unknown]
  - Cardio-respiratory arrest [Unknown]
  - Candida pneumonia [Fatal]
  - Systemic candida [Unknown]

NARRATIVE: CASE EVENT DATE: 20160928
